FAERS Safety Report 4678623-4 (Version None)
Quarter: 2005Q2

REPORT INFORMATION
  Report Type: 
  Country: None (occurrence: None)
  Receive Date: 20050531
  Receipt Date: 20050531
  Transmission Date: 20051028
  Serious: Yes (Hospitalization)
  Sender: FDA-Public Use
  Company Number: None

PATIENT
  Age: 28 Year
  Sex: Female
  Weight: 56.6996 kg

DRUGS (1)
  1. SEASONALE [Suspect]
     Indication: CONTRACEPTION
     Dosage: 1 PILL DAILY ORAL
     Route: 048
     Dates: start: 20040801, end: 20041008

REACTIONS (4)
  - CONVULSION [None]
  - EMOTIONAL DISORDER [None]
  - IMPAIRED DRIVING ABILITY [None]
  - LOSS OF CONSCIOUSNESS [None]
